FAERS Safety Report 19467125 (Version 2)
Quarter: 2021Q3

REPORT INFORMATION
  Report Type: Spontaneous
  Country: US (occurrence: US)
  Receive Date: 20210628
  Receipt Date: 20210720
  Transmission Date: 20211014
  Serious: No
  Sender: FDA-Public Use
  Company Number: US-JNJFOC-20210643701

PATIENT
  Age: 14 Year
  Sex: Female

DRUGS (6)
  1. TYLENOL [Suspect]
     Active Substance: ACETAMINOPHEN
     Indication: PAIN IN EXTREMITY
  2. AMOXICILLIN 875MG [Concomitant]
     Active Substance: AMOXICILLIN
     Indication: COUGH
     Dates: start: 202105
  3. TYLENOL [Suspect]
     Active Substance: ACETAMINOPHEN
     Indication: PAIN IN EXTREMITY
     Route: 065
     Dates: start: 202105
  4. ADVIL [Concomitant]
     Active Substance: IBUPROFEN
     Indication: PAIN IN EXTREMITY
     Route: 065
     Dates: start: 202105
  5. ADVIL [Concomitant]
     Active Substance: IBUPROFEN
     Indication: PAIN IN EXTREMITY
  6. COVID?19 VACCINE [Concomitant]
     Indication: PRODUCT USED FOR UNKNOWN INDICATION
     Dosage: FIRST DOSE;RIGHT SHOULDER
     Route: 030
     Dates: start: 20210523

REACTIONS (1)
  - Drug ineffective [Unknown]

NARRATIVE: CASE EVENT DATE: 202105
